FAERS Safety Report 23820229 (Version 1)
Quarter: 2024Q2

REPORT INFORMATION
  Report Type: Spontaneous
  Country: US (occurrence: US)
  Receive Date: 20240506
  Receipt Date: 20240506
  Transmission Date: 20240716
  Serious: No
  Sender: FDA-Public Use
  Company Number: US-TEVA-VS-3185403

PATIENT

DRUGS (4)
  1. PREDNISONE [Suspect]
     Active Substance: PREDNISONE
     Indication: Pain
     Dosage: THREE 10MG. TABLETS
     Route: 065
     Dates: start: 20240415
  2. ATORVASTATIN [Concomitant]
     Active Substance: ATORVASTATIN
  3. FLUOXETINE [Concomitant]
     Active Substance: FLUOXETINE HYDROCHLORIDE
  4. OMEPRAZOLE [Concomitant]
     Active Substance: OMEPRAZOLE

REACTIONS (1)
  - Hyperhidrosis [Unknown]

NARRATIVE: CASE EVENT DATE: 20240416
